FAERS Safety Report 8052384-3 (Version None)
Quarter: 2012Q1

REPORT INFORMATION
  Report Type: 
  Country: None (occurrence: None)
  Receive Date: 20120118
  Receipt Date: 20120109
  Transmission Date: 20120608
  Serious: Yes (Hospitalization)
  Sender: FDA-Public Use
  Company Number: FR-ELI_LILLY_AND_COMPANY-FR201201002176

PATIENT
  Age: 60 Year
  Sex: Female

DRUGS (9)
  1. ASPIRIN [Concomitant]
  2. PERINDOPRIL ERBUMINE [Concomitant]
  3. PRAZEPAM [Concomitant]
  4. RABEPRAZOLE SODIUM [Concomitant]
  5. CYMBALTA [Suspect]
     Indication: DEPRESSION
     Dosage: 60 MG, QD
     Route: 048
     Dates: start: 20111107, end: 20111208
  6. NOROXIN [Concomitant]
     Indication: CYSTITIS
     Dosage: 800 MG, QD
     Route: 048
     Dates: start: 20111122, end: 20111130
  7. PREDNISONE TAB [Concomitant]
  8. ISOPTIN [Concomitant]
  9. SIMVASTATIN [Concomitant]

REACTIONS (2)
  - PRURITUS [None]
  - RASH PAPULAR [None]
